FAERS Safety Report 10704182 (Version 1)
Quarter: 2014Q4

REPORT INFORMATION
  Report Type: Report from Study
  Country: US (occurrence: None)
  Receive Date: 20141224
  Receipt Date: 20141224
  Transmission Date: 20150529
  Serious: No
  Sender: FDA-Public Use
  Company Number: CABO-14004902

PATIENT
  Age: 72 Year
  Sex: Female

DRUGS (1)
  1. COMETRIQ [Suspect]
     Active Substance: CABOZANTINIB S-MALATE
     Indication: THYROID CANCER
     Route: 048
     Dates: start: 20141020, end: 20141026

REACTIONS (7)
  - Epistaxis [None]
  - Gastrooesophageal reflux disease [None]
  - Dysphagia [None]
  - Dyspepsia [None]
  - Cough [None]
  - Vomiting [None]
  - Abdominal pain upper [None]
